FAERS Safety Report 13076593 (Version 1)
Quarter: 2016Q4

REPORT INFORMATION
  Report Type: Spontaneous
  Country: IT (occurrence: IT)
  Receive Date: 20161230
  Receipt Date: 20161230
  Transmission Date: 20170207
  Serious: Yes (Other)
  Sender: FDA-Public Use
  Company Number: IT-TEVA-723782ACC

PATIENT
  Age: 60 Year
  Sex: Male

DRUGS (3)
  1. SILDENAFIL TEVA - 100 MG COMPRESSA RIVESTITA CON FILM - TEVA B.V. [Suspect]
     Active Substance: SILDENAFIL
     Indication: ERECTILE DYSFUNCTION
     Dosage: 33.3 MG TOTAL
     Route: 048
     Dates: start: 20161214, end: 20161214
  2. LIPERIAL [Concomitant]
     Active Substance: FENOFIBRATE
     Indication: PRODUCT USED FOR UNKNOWN INDICATION
  3. EUTIROX - 100 MICROGRAMMI COMPRESSE [Concomitant]
     Active Substance: LEVOTHYROXINE SODIUM
     Indication: PRODUCT USED FOR UNKNOWN INDICATION

REACTIONS (2)
  - Penile haemorrhage [Recovered/Resolved]
  - Genital discomfort [Recovered/Resolved]

NARRATIVE: CASE EVENT DATE: 20161214
